FAERS Safety Report 25153233 (Version 10)
Quarter: 2025Q4

REPORT INFORMATION
  Report Type: Report from Study
  Country: US (occurrence: US)
  Receive Date: 20250403
  Receipt Date: 20251224
  Transmission Date: 20260118
  Serious: No
  Sender: SANDOZ
  Company Number: US-SANDOZ-SDZ2025US018689

PATIENT
  Age: 74 Year
  Sex: Female

DRUGS (4)
  1. OMNITROPE [Suspect]
     Active Substance: SOMATROPIN
     Indication: Hypopituitarism
     Dosage: UNK, QD
     Dates: start: 20250325
  2. OMNITROPE [Suspect]
     Active Substance: SOMATROPIN
     Dosage: 0.3 MG, QD
  3. OMNITROPE [Suspect]
     Active Substance: SOMATROPIN
     Dosage: 0.3 MG, QD
  4. OMNITROPE [Suspect]
     Active Substance: SOMATROPIN
     Dosage: 0.3 MG, QD(5 MG / 1.5 ML)
     Dates: start: 20250115

REACTIONS (12)
  - Muscular weakness [Unknown]
  - Concussion [Recovering/Resolving]
  - Fatigue [Unknown]
  - Cortisol decreased [Unknown]
  - Inadvertent injection air bubble [Unknown]
  - Therapy interrupted [Unknown]
  - Circumstance or information capable of leading to medication error [Unknown]
  - Product preparation error [Unknown]
  - Needle issue [Unknown]
  - Product storage error [Unknown]
  - Product dose omission issue [Unknown]
  - Poor quality product administered [Unknown]

NARRATIVE: CASE EVENT DATE: 20250325
